FAERS Safety Report 4471478-2 (Version None)
Quarter: 2004Q4

REPORT INFORMATION
  Report Type: 
  Country: None (occurrence: None)
  Receive Date: 20041006
  Receipt Date: 20040924
  Transmission Date: 20050328
  Serious: Yes (Hospitalization)
  Sender: FDA-Public Use
  Company Number: 2004-BP-08611RO

PATIENT
  Age: 63 Year
  Sex: Female

DRUGS (5)
  1. LEUCOVORIN CALCIUM [Suspect]
     Indication: RECTAL CANCER
     Dosage: 75 MG/DAY, PO
     Route: 048
     Dates: start: 20040721, end: 20040817
  2. UFT [Suspect]
     Indication: RECTAL CANCER
     Dosage: 4 CAPSULES/DAY, PO
     Route: 048
     Dates: start: 20040721, end: 20040817
  3. LACTIC ACID BACTERIA (LACTIC ACID) [Concomitant]
  4. MAGNESIUM OXIDE (MAGNESIUM OXIDE) [Concomitant]
  5. MOSAPRIDE (MOSAPRIDE) [Concomitant]

REACTIONS (3)
  - ALANINE AMINOTRANSFERASE INCREASED [None]
  - ASPARTATE AMINOTRANSFERASE INCREASED [None]
  - LIVER DISORDER [None]
